FAERS Safety Report 20792007 (Version 1)
Quarter: 2022Q2

REPORT INFORMATION
  Report Type: Spontaneous
  Country: US (occurrence: None)
  Receive Date: 20220505
  Receipt Date: 20220505
  Transmission Date: 20220720
  Serious: No
  Sender: FDA-Public Use
  Company Number: None

PATIENT
  Sex: Male

DRUGS (1)
  1. LENALIDOMIDE [Suspect]
     Active Substance: LENALIDOMIDE
     Indication: Plasma cell myeloma
     Dosage: 5MG DAILY ORAL??TO ON HOLD?
     Route: 048
     Dates: start: 202203

REACTIONS (4)
  - Dyspnoea [None]
  - Muscle spasms [None]
  - Muscle spasms [None]
  - Tremor [None]
